FAERS Safety Report 21513911 (Version 1)
Quarter: 2022Q4

REPORT INFORMATION
  Report Type: Spontaneous
  Country: US (occurrence: US)
  Receive Date: 20221027
  Receipt Date: 20221027
  Transmission Date: 20230113
  Serious: No
  Sender: FDA-Public Use
  Company Number: US-drreddys-SPO/USA/22/0156128

PATIENT
  Age: 19 Year
  Sex: Female

DRUGS (2)
  1. ZENATANE [Suspect]
     Active Substance: ISOTRETINOIN
     Indication: Acne
     Dosage: RMA ISSUE DATE: 2 JUNE 2022 02:42:38 PM, 1 JULY 2022 10:49:16 AM, 4 AUGUST 2022 11:21:40 AM AND 9 SE
  2. ZENATANE [Suspect]
     Active Substance: ISOTRETINOIN
     Dosage: RMA ISSUE DATE: 2 JUNE 2022 02:42:38 PM, 1 JULY 2022 10:49:16 AM AND 4 AUGUST 2022 11:21:40 AM

REACTIONS (1)
  - Abdominal pain upper [Unknown]
